FAERS Safety Report 6208868-3 (Version None)
Quarter: 2009Q2

REPORT INFORMATION
  Report Type: 
  Country: None (occurrence: None)
  Receive Date: 20090529
  Receipt Date: 20090521
  Transmission Date: 20091009
  Serious: Yes (Other)
  Sender: FDA-Public Use
  Company Number: B0557874A

PATIENT
  Sex: Female

DRUGS (3)
  1. RELENZA [Suspect]
     Indication: INFLUENZA
     Dosage: 10MG TWICE PER DAY
     Route: 055
     Dates: start: 20090130
  2. CALONAL [Concomitant]
     Indication: ANTIPYRESIS
     Route: 065
  3. MEDICON [Concomitant]
     Indication: COUGH
     Dosage: 45MG PER DAY
     Route: 048
     Dates: start: 20090130

REACTIONS (8)
  - ABDOMINAL PAIN [None]
  - ANAPHYLACTIC REACTION [None]
  - DYSPNOEA [None]
  - ERYTHEMA [None]
  - FACE OEDEMA [None]
  - PHARYNGEAL OEDEMA [None]
  - PRURITUS [None]
  - URTICARIA [None]
